FAERS Safety Report 4268856-3 (Version None)
Quarter: 2004Q1

REPORT INFORMATION
  Report Type: 
  Country: None (occurrence: None)
  Receive Date: 20040109
  Receipt Date: 20031226
  Transmission Date: 20041129
  Serious: Yes (Other)
  Sender: FDA-Public Use
  Company Number: USA021225089

PATIENT
  Sex: Female

DRUGS (1)
  1. FORTEO [Suspect]
     Dates: start: 20020101

REACTIONS (6)
  - ARTHROPATHY [None]
  - CONTUSION [None]
  - FALL [None]
  - HAEMORRHAGE [None]
  - SKIN DISCOLOURATION [None]
  - TENDERNESS [None]
